FAERS Safety Report 8869092 (Version 2)
Quarter: 2013Q1

REPORT INFORMATION
  Report Type: Spontaneous
  Country: IT (occurrence: None)
  Receive Date: 20121022
  Receipt Date: 20121109
  Transmission Date: 20140127
  Serious: Yes (Hospitalization)
  Sender: FDA-Public Use
  Company Number: AUR-APL-2012-04449

PATIENT
  Age: 81 Year
  Sex: Female

DRUGS (5)
  1. RAMIPRIL (RAMIPRIL) [Suspect]
     Route: 048
     Dates: start: 20110731, end: 20120730
  2. LASIX (FUROSEMIDE) [Suspect]
     Route: 048
     Dates: start: 20110731, end: 20120731
  3. TEGRETOL [Suspect]
     Route: 048
     Dates: start: 20110731, end: 20120730
  4. LUVION (CANRENOIC ACID) [Concomitant]
  5. ALLOPURINOL [Concomitant]

REACTIONS (1)
  - Hyponatraemia [None]
